FAERS Safety Report 9404307 (Version 1)
Quarter: 2013Q3

REPORT INFORMATION
  Report Type: Spontaneous
  Country: US (occurrence: None)
  Receive Date: 20130711
  Receipt Date: 20130711
  Transmission Date: 20140515
  Serious: Yes (Hospitalization)
  Sender: FDA-Public Use
  Company Number: 1788340

PATIENT
  Age: 35 Year
  Sex: Male
  Weight: 72.73 kg

DRUGS (2)
  1. METHOTREXATE INJECTION (METHOTREXATE) [Suspect]
     Indication: PRODUCT USED FOR UNKNOWN INDICATION
     Dosage: 1 WEEK
     Route: 058
  2. (HUMIRA) [Concomitant]
     Route: 030

REACTIONS (5)
  - Fatigue [None]
  - Nausea [None]
  - Vomiting [None]
  - Alopecia [None]
  - Crohn^s disease [None]
